FAERS Safety Report 15333886 (Version 3)
Quarter: 2019Q1

REPORT INFORMATION
  Report Type: Report from Study
  Country: US (occurrence: US)
  Receive Date: 20180830
  Receipt Date: 20190219
  Transmission Date: 20190417
  Serious: Yes (Death, Life-Threatening, Hospitalization, Other)
  Sender: FDA-Public Use
  Company Number: PHHY2018US085415

PATIENT
  Age: 15 Year
  Sex: Male
  Weight: 63 kg

DRUGS (397)
  1. BACTRIM [Concomitant]
     Active Substance: SULFAMETHOXAZOLE\TRIMETHOPRIM
     Indication: PRODUCT USED FOR UNKNOWN INDICATION
     Dosage: UNK 2 TIMES PER DAY ON SAT AND SUN
     Route: 065
     Dates: start: 20180331
  2. VANCOCIN [Concomitant]
     Active Substance: VANCOMYCIN HYDROCHLORIDE
     Dosage: 1000 MG, UNK
     Route: 042
     Dates: start: 20180414
  3. ATIVAN [Concomitant]
     Active Substance: LORAZEPAM
     Dosage: 0.5 MG, Q6H
     Route: 065
     Dates: start: 20180518
  4. ATIVAN [Concomitant]
     Active Substance: LORAZEPAM
     Dosage: 1 MG, Q6H
     Route: 065
     Dates: start: 20180403
  5. ZOFRAN [Concomitant]
     Active Substance: ONDANSETRON HYDROCHLORIDE
     Dosage: UNK, Q8H PRN
     Route: 065
     Dates: start: 20180417
  6. ZOFRAN [Concomitant]
     Active Substance: ONDANSETRON HYDROCHLORIDE
     Dosage: 8 MG, Q6H
     Route: 065
     Dates: start: 20180430
  7. TYLENOL [Concomitant]
     Active Substance: ACETAMINOPHEN
     Dosage: 650 MG, PRN
     Route: 065
     Dates: start: 20180406
  8. TYLENOL [Concomitant]
     Active Substance: ACETAMINOPHEN
     Dosage: 1000 MG, PRN
     Route: 065
     Dates: start: 20180409
  9. TYLENOL [Concomitant]
     Active Substance: ACETAMINOPHEN
     Dosage: 650 MG, PRN
     Route: 065
     Dates: start: 20180414
  10. DILAUDID [Concomitant]
     Active Substance: HYDROMORPHONE HYDROCHLORIDE
     Dosage: 0.5 MG, UNK
     Route: 065
     Dates: start: 20180509
  11. SIMETHICONE (DIMETHICONE) [Concomitant]
     Active Substance: DIMETHICONE
     Indication: PRODUCT USED FOR UNKNOWN INDICATION
     Route: 065
  12. INTROPIN [Concomitant]
     Active Substance: DOPAMINE HYDROCHLORIDE
     Dosage: 1600 MCG/ML, CONTINUOUS
     Route: 065
     Dates: start: 20180825
  13. INTROPIN [Concomitant]
     Active Substance: DOPAMINE HYDROCHLORIDE
     Dosage: 800 MCG/ML, CONTINUOUS
     Route: 065
     Dates: start: 20180826
  14. INTROPIN [Concomitant]
     Active Substance: DOPAMINE HYDROCHLORIDE
     Dosage: 3200 MCG/ML, CONTINUOUS
     Route: 065
     Dates: start: 20180829
  15. CREON [Concomitant]
     Active Substance: PANCRELIPASE AMYLASE\PANCRELIPASE LIPASE\PANCRELIPASE PROTEASE
     Indication: PRODUCT USED FOR UNKNOWN INDICATION
     Dosage: UNK UNK, TID WITH MEALS
     Route: 065
     Dates: start: 20180330
  16. CATHFLO ACTIVASE [Concomitant]
     Active Substance: ALTEPLASE
     Indication: PRODUCT USED FOR UNKNOWN INDICATION
     Dosage: 2 MG, Q2H
     Route: 065
     Dates: start: 20180402
  17. CATHFLO ACTIVASE [Concomitant]
     Active Substance: ALTEPLASE
     Dosage: 2 MG, ONCE
     Route: 065
     Dates: start: 20180403
  18. BENADRYL [Concomitant]
     Active Substance: DIPHENHYDRAMINE HYDROCHLORIDE
     Dosage: 25 MG, PRN
     Route: 065
     Dates: start: 20180517
  19. PROVENTIL [Concomitant]
     Active Substance: ALBUTEROL
     Dosage: 2.5 MG/ML, PRN
     Route: 055
     Dates: start: 20180509
  20. KLOR-CON [Concomitant]
     Active Substance: POTASSIUM CHLORIDE
     Dosage: 40 MEQ, QD
     Route: 065
     Dates: start: 20180419
  21. LASIX [Concomitant]
     Active Substance: FUROSEMIDE
     Dosage: 20 MG, QD
     Route: 065
     Dates: start: 20180430
  22. LASIX [Concomitant]
     Active Substance: FUROSEMIDE
     Dosage: 60 MG, QD
     Route: 065
     Dates: start: 20180602
  23. NEUPOGEN [Concomitant]
     Active Substance: FILGRASTIM
     Indication: PRODUCT USED FOR UNKNOWN INDICATION
     Dosage: 330 MCG, QD
     Route: 065
     Dates: start: 20180507
  24. ZYPREXA [Concomitant]
     Active Substance: OLANZAPINE
     Indication: PRODUCT USED FOR UNKNOWN INDICATION
     Dosage: 2.5 MG, BED TIME PRN
     Route: 065
     Dates: start: 20180511
  25. GAMUNEX [Concomitant]
     Active Substance: HUMAN IMMUNOGLOBULIN G
     Indication: PRODUCT USED FOR UNKNOWN INDICATION
     Dosage: 26 G, QD
     Route: 065
     Dates: start: 20180512
  26. ADEFOVIR [Concomitant]
     Active Substance: ADEFOVIR
     Indication: PRODUCT USED FOR UNKNOWN INDICATION
     Route: 065
  27. CIDOFOVIR. [Concomitant]
     Active Substance: CIDOFOVIR
     Indication: PRODUCT USED FOR UNKNOWN INDICATION
     Route: 065
  28. SODIUM CHLORIDE. [Concomitant]
     Active Substance: SODIUM CHLORIDE
     Dosage: 0.9 %, PRN
     Route: 065
     Dates: start: 20180404
  29. ALBUMIN [Concomitant]
     Active Substance: ALBUMIN HUMAN
     Dosage: 170 ML, UNK
     Route: 065
     Dates: start: 20180802, end: 20180802
  30. ALBUMIN [Concomitant]
     Active Substance: ALBUMIN HUMAN
     Dosage: 120 ML, PRN
     Route: 065
     Dates: start: 20180807, end: 20180807
  31. ALBUMIN [Concomitant]
     Active Substance: ALBUMIN HUMAN
     Dosage: 75 ML, EVERY HOUR
     Route: 065
     Dates: start: 20180829, end: 20180829
  32. NORCURON [Concomitant]
     Active Substance: VECURONIUM BROMIDE
     Indication: PRODUCT USED FOR UNKNOWN INDICATION
     Dosage: 6 MG, EVERY 1 HOUR PRN
     Route: 065
     Dates: start: 20180720
  33. OFIRMEV [Concomitant]
     Active Substance: ACETAMINOPHEN
     Dosage: 1000 MG, QD
     Route: 042
     Dates: start: 20180512
  34. OFIRMEV [Concomitant]
     Active Substance: ACETAMINOPHEN
     Dosage: 500 MG,EVERY 6 HOURS
     Route: 042
     Dates: start: 20180728, end: 20180730
  35. OFIRMEV [Concomitant]
     Active Substance: ACETAMINOPHEN
     Dosage: 1000 MG, ONCE
     Route: 042
     Dates: start: 20180829, end: 20180829
  36. MAGNESIUM [Concomitant]
     Active Substance: MAGNESIUM
     Dosage: UNK, QD
     Route: 065
     Dates: start: 20180722
  37. MAGNESIUM [Concomitant]
     Active Substance: MAGNESIUM
     Dosage: UNK, QD
     Route: 065
     Dates: start: 20180829
  38. EPINEPHRINE. [Concomitant]
     Active Substance: EPINEPHRINE
     Indication: PRODUCT USED FOR UNKNOWN INDICATION
     Dosage: 0.572 MG, QD
     Route: 065
     Dates: start: 20180829, end: 20180829
  39. CALCIUM [Concomitant]
     Active Substance: CALCIUM
     Indication: PRODUCT USED FOR UNKNOWN INDICATION
     Dosage: 100 MG/ML, QD
     Route: 065
     Dates: start: 20180727
  40. LIDOCAINE. [Concomitant]
     Active Substance: LIDOCAINE
     Dosage: 0.25 ML, QD
     Route: 065
     Dates: start: 20180410
  41. LIDOCAINE. [Concomitant]
     Active Substance: LIDOCAINE
     Dosage: UNK ML, QD
     Route: 065
     Dates: start: 20180509
  42. POTASSIUM CHLORIDE. [Concomitant]
     Active Substance: POTASSIUM CHLORIDE
  43. VANCOMYCIN [Concomitant]
     Active Substance: VANCOMYCIN
     Indication: PRODUCT USED FOR UNKNOWN INDICATION
     Route: 065
  44. ADRENALIN [Concomitant]
     Active Substance: EPINEPHRINE
     Dosage: UNK
     Route: 065
     Dates: start: 20180722
  45. ADRENALIN [Concomitant]
     Active Substance: EPINEPHRINE
     Dosage: UNK, PRN
     Route: 065
     Dates: start: 20180804
  46. SOLU-MEDROL [Concomitant]
     Active Substance: METHYLPREDNISOLONE SODIUM SUCCINATE
     Indication: PRODUCT USED FOR UNKNOWN INDICATION
     Dosage: 63 MG, UNK
     Route: 065
     Dates: start: 20180403
  47. SOLU-CORTEF [Concomitant]
     Active Substance: HYDROCORTISONE SODIUM SUCCINATE
     Dosage: 100 MG, EVERY 8 HOURS
     Route: 065
     Dates: start: 20180805
  48. LEVOPHED [Concomitant]
     Active Substance: NOREPINEPHRINE BITARTRATE
     Dosage: 8 MG, UNK
     Route: 065
     Dates: start: 20180724
  49. VIMPAT [Concomitant]
     Active Substance: LACOSAMIDE
     Indication: PRODUCT USED FOR UNKNOWN INDICATION
     Route: 065
  50. XYLOCAINE [Concomitant]
     Active Substance: LIDOCAINE HYDROCHLORIDE
     Dosage: 10 MG/ML, QD
     Route: 065
     Dates: start: 20180823
  51. LIQUITEARS [Concomitant]
     Active Substance: POLYVINYL ALCOHOL
     Indication: PRODUCT USED FOR UNKNOWN INDICATION
     Route: 065
  52. PLASMALYTE A [Concomitant]
     Indication: PRODUCT USED FOR UNKNOWN INDICATION
     Route: 065
  53. HEPARIN [Concomitant]
     Active Substance: HEPARIN SODIUM
     Indication: PRODUCT USED FOR UNKNOWN INDICATION
     Dosage: UNK
     Route: 065
     Dates: start: 20180330
  54. OMNIPAQUE [Concomitant]
     Active Substance: IOHEXOL
     Dosage: UNK
     Route: 065
     Dates: start: 20180509
  55. PROTONIX [Concomitant]
     Active Substance: PANTOPRAZOLE SODIUM
     Indication: PRODUCT USED FOR UNKNOWN INDICATION
     Route: 065
  56. VANCOCIN [Concomitant]
     Active Substance: VANCOMYCIN HYDROCHLORIDE
     Dosage: 1000 MG, UNK
     Route: 042
     Dates: start: 20180504
  57. VANCOCIN [Concomitant]
     Active Substance: VANCOMYCIN HYDROCHLORIDE
     Dosage: 1000 MG, UNK
     Route: 042
     Dates: start: 20180511
  58. ATIVAN [Concomitant]
     Active Substance: LORAZEPAM
     Dosage: 0.5 MG, Q6H
     Route: 065
     Dates: start: 20180517
  59. ATIVAN [Concomitant]
     Active Substance: LORAZEPAM
     Dosage: 8 MG, Q3H
     Route: 065
     Dates: start: 20180820
  60. ZOFRAN [Concomitant]
     Active Substance: ONDANSETRON HYDROCHLORIDE
     Dosage: UNK, Q8H PRN
     Route: 065
     Dates: start: 20180410
  61. TYLENOL [Concomitant]
     Active Substance: ACETAMINOPHEN
     Dosage: 650 MG, PRN
     Route: 065
     Dates: start: 20180413
  62. TYLENOL [Concomitant]
     Active Substance: ACETAMINOPHEN
     Dosage: 650 MG, PRN
     Route: 065
     Dates: start: 20180504
  63. DILAUDID [Concomitant]
     Active Substance: HYDROMORPHONE HYDROCHLORIDE
     Dosage: 2.4 MG, EVERY 2 HOURS PRN
     Route: 065
     Dates: start: 20180813
  64. DILAUDID [Concomitant]
     Active Substance: HYDROMORPHONE HYDROCHLORIDE
     Dosage: 2.9 MG, EVERY 2 HOURS PRN
     Route: 065
     Dates: start: 20180818
  65. ROXICODONE [Concomitant]
     Active Substance: OXYCODONE HYDROCHLORIDE
     Dosage: 5 MG, Q4H
     Route: 065
     Dates: start: 20180415
  66. BENADRYL [Concomitant]
     Active Substance: DIPHENHYDRAMINE HYDROCHLORIDE
     Dosage: 50 MG, PRN
     Route: 065
     Dates: start: 20180410
  67. BENADRYL [Concomitant]
     Active Substance: DIPHENHYDRAMINE HYDROCHLORIDE
     Dosage: 25 MG, PRN
     Route: 065
     Dates: start: 20180414
  68. KLOR-CON [Concomitant]
     Active Substance: POTASSIUM CHLORIDE
     Dosage: 20 MEQ, QD
     Route: 065
     Dates: start: 20180417
  69. KLOR-CON [Concomitant]
     Active Substance: POTASSIUM CHLORIDE
     Dosage: 40 MEQ, QD
     Route: 065
     Dates: start: 20180420
  70. KLOR-CON [Concomitant]
     Active Substance: POTASSIUM CHLORIDE
     Dosage: 20 MEQ, QD
     Route: 065
     Dates: start: 20180502
  71. CYTOXAN [Concomitant]
     Active Substance: CYCLOPHOSPHAMIDE
     Indication: PRODUCT USED FOR UNKNOWN INDICATION
     Dosage: 760 MG, QD
     Route: 065
     Dates: start: 20180509
  72. GADAVIST [Concomitant]
     Active Substance: GADOBUTROL
     Indication: PRODUCT USED FOR UNKNOWN INDICATION
     Dosage: 6.67 ML, UNK
     Route: 065
     Dates: start: 20180409
  73. GADAVIST [Concomitant]
     Active Substance: GADOBUTROL
     Dosage: 6.67 ML, UNK
     Route: 065
     Dates: start: 20180410
  74. SUBLIMAZE [Concomitant]
     Active Substance: FENTANYL CITRATE
     Dosage: 50 MCG, EVERY ONE HOUR PRN
     Route: 065
     Dates: start: 20180803, end: 20180807
  75. SUBLIMAZE [Concomitant]
     Active Substance: FENTANYL CITRATE
     Dosage: 75 MCG, EVERY ONE HOUR PRN
     Route: 065
     Dates: start: 20180808, end: 20180808
  76. SUBLIMAZE [Concomitant]
     Active Substance: FENTANYL CITRATE
     Dosage: 114.5 MCG, UNK
     Route: 065
     Dates: start: 20180822, end: 20180823
  77. ALBUMIN [Concomitant]
     Active Substance: ALBUMIN HUMAN
     Indication: PRODUCT USED FOR UNKNOWN INDICATION
     Dosage: 25 G, UNK
     Route: 065
     Dates: start: 20180722, end: 20180722
  78. ALBUMIN [Concomitant]
     Active Substance: ALBUMIN HUMAN
     Dosage: UNK
     Route: 065
     Dates: start: 20180729, end: 20180729
  79. ALBUMIN [Concomitant]
     Active Substance: ALBUMIN HUMAN
     Dosage: 120 ML, UNK
     Route: 065
     Dates: start: 20180804, end: 20180804
  80. ALBUMIN [Concomitant]
     Active Substance: ALBUMIN HUMAN
     Dosage: 60 ML, Q6H
     Route: 065
     Dates: start: 20180814, end: 20180814
  81. OFIRMEV [Concomitant]
     Active Substance: ACETAMINOPHEN
     Dosage: 1000 MG, QD
     Route: 042
     Dates: start: 20180508
  82. OFIRMEV [Concomitant]
     Active Substance: ACETAMINOPHEN
     Dosage: 1000 MG, QD
     Route: 042
     Dates: start: 20180517
  83. OFIRMEV [Concomitant]
     Active Substance: ACETAMINOPHEN
     Dosage: 1000 MG, QD
     Route: 042
     Dates: start: 20180524
  84. OFIRMEV [Concomitant]
     Active Substance: ACETAMINOPHEN
     Dosage: 500 MG,EVERY 6 HOURS PRN
     Route: 042
     Dates: start: 20180730, end: 20180805
  85. OFIRMEV [Concomitant]
     Active Substance: ACETAMINOPHEN
     Dosage: 715 MG,EVERY 6 HOURS
     Route: 042
     Dates: start: 20180807, end: 20180809
  86. MAGNESIUM [Concomitant]
     Active Substance: MAGNESIUM
     Dosage: UNK, QD
     Route: 065
     Dates: start: 20180728
  87. MAGNESIUM [Concomitant]
     Active Substance: MAGNESIUM
     Dosage: UNK, QD
     Route: 065
     Dates: start: 20180731
  88. MAGNESIUM [Concomitant]
     Active Substance: MAGNESIUM
     Dosage: UNK, QD
     Route: 065
     Dates: start: 20180825
  89. CALCIUM [Concomitant]
     Active Substance: CALCIUM
     Dosage: 100 MG/ML, QD
     Route: 065
     Dates: start: 20180801
  90. CALCIUM [Concomitant]
     Active Substance: CALCIUM
     Dosage: 100 MG/ML, QD
     Route: 065
     Dates: start: 20180803
  91. CALCIUM [Concomitant]
     Active Substance: CALCIUM
     Dosage: 100 MG/ML, QD
     Route: 065
     Dates: start: 20180816
  92. LIDOCAINE. [Concomitant]
     Active Substance: LIDOCAINE
     Indication: PRODUCT USED FOR UNKNOWN INDICATION
     Dosage: UNK ONCE
     Route: 065
     Dates: start: 20180329
  93. LIDOCAINE. [Concomitant]
     Active Substance: LIDOCAINE
     Dosage: UNK ML, QD
     Route: 065
     Dates: start: 20180413
  94. LIDOCAINE. [Concomitant]
     Active Substance: LIDOCAINE
     Dosage: UNK ML, QD
     Route: 065
     Dates: start: 20180502
  95. NOREPINEPHRINE. [Concomitant]
     Active Substance: NOREPINEPHRINE
  96. NOVOLIN [Concomitant]
     Active Substance: INSULIN HUMAN
     Indication: PRODUCT USED FOR UNKNOWN INDICATION
     Route: 065
  97. ADRENALIN [Concomitant]
     Active Substance: EPINEPHRINE
     Dosage: UNK, PRN
     Route: 065
     Dates: start: 20180810
  98. ADRENALIN [Concomitant]
     Active Substance: EPINEPHRINE
     Dosage: UNK, PRN
     Route: 065
     Dates: start: 20180815
  99. ADRENALIN [Concomitant]
     Active Substance: EPINEPHRINE
     Dosage: UNK, PRN
     Route: 065
     Dates: start: 20180828
  100. PHENOBARBITAL. [Concomitant]
     Active Substance: PHENOBARBITAL
     Indication: PRODUCT USED FOR UNKNOWN INDICATION
     Route: 065
  101. SODIUM CITRATE. [Concomitant]
     Active Substance: SODIUM CITRATE
     Indication: PRODUCT USED FOR UNKNOWN INDICATION
     Dosage: UNK ONCE
     Route: 065
     Dates: start: 20180204
  102. SODIUM CITRATE. [Concomitant]
     Active Substance: SODIUM CITRATE
     Dosage: UNK ONCE
     Route: 065
     Dates: start: 20180410
  103. MYDFRIN [Concomitant]
     Active Substance: PHENYLEPHRINE HYDROCHLORIDE
     Indication: PRODUCT USED FOR UNKNOWN INDICATION
     Route: 065
  104. SOLU-CORTEF [Concomitant]
     Active Substance: HYDROCORTISONE SODIUM SUCCINATE
     Dosage: 100 MG, EVERY 6 HOURS
     Route: 065
     Dates: start: 20180802
  105. SOLU-CORTEF [Concomitant]
     Active Substance: HYDROCORTISONE SODIUM SUCCINATE
     Dosage: 25 MG, EVERY 8 HOURS
     Route: 065
     Dates: start: 20180808
  106. LEVOPHED [Concomitant]
     Active Substance: NOREPINEPHRINE BITARTRATE
     Dosage: 3.2 MG, UNK
     Route: 065
     Dates: start: 20180723
  107. LEVOPHED [Concomitant]
     Active Substance: NOREPINEPHRINE BITARTRATE
     Dosage: 8 MG, UNK
     Route: 065
     Dates: start: 20180725
  108. LEVOPHED [Concomitant]
     Active Substance: NOREPINEPHRINE BITARTRATE
     Dosage: 8 MG, UNK
     Route: 065
     Dates: start: 20180829
  109. XYLOCAINE [Concomitant]
     Active Substance: LIDOCAINE HYDROCHLORIDE
     Dosage: 10 MG/ML, QD
     Route: 065
     Dates: start: 20180728
  110. XYLOCAINE [Concomitant]
     Active Substance: LIDOCAINE HYDROCHLORIDE
     Dosage: 10 MG/ML, QD
     Route: 065
     Dates: start: 20180829
  111. COLACE [Concomitant]
     Active Substance: DOCUSATE SODIUM
     Dosage: 250 MG, BID PRN
     Route: 065
     Dates: start: 20180615
  112. COLACE [Concomitant]
     Active Substance: DOCUSATE SODIUM
     Dosage: 250 MG, BID PRN
     Route: 065
     Dates: start: 20180617
  113. OMNIPAQUE [Concomitant]
     Active Substance: IOHEXOL
     Indication: PRODUCT USED FOR UNKNOWN INDICATION
     Dosage: UNK
     Route: 065
     Dates: start: 20180411
  114. VANCOCIN [Concomitant]
     Active Substance: VANCOMYCIN HYDROCHLORIDE
     Dosage: 1000 MG, UNK
     Route: 042
     Dates: start: 20180428
  115. ATIVAN [Concomitant]
     Active Substance: LORAZEPAM
     Dosage: 0.5 MG, Q6H
     Route: 065
     Dates: start: 20180510
  116. ZOFRAN [Concomitant]
     Active Substance: ONDANSETRON HYDROCHLORIDE
     Dosage: UNK, Q8H PRN
     Route: 065
     Dates: start: 20180509
  117. TYLENOL [Concomitant]
     Active Substance: ACETAMINOPHEN
     Dosage: 650 MG, PRN
     Route: 065
     Dates: start: 20180410
  118. TYLENOL [Concomitant]
     Active Substance: ACETAMINOPHEN
     Dosage: 650 MG, PRN
     Route: 065
     Dates: start: 20180411
  119. TYLENOL [Concomitant]
     Active Substance: ACETAMINOPHEN
     Dosage: 650 MG, PRN
     Route: 065
     Dates: start: 20180412
  120. TYLENOL [Concomitant]
     Active Substance: ACETAMINOPHEN
     Dosage: 650 MG, PRN
     Route: 065
     Dates: start: 20180421
  121. CALCIUM [Concomitant]
     Active Substance: CALCIUM
     Dosage: 572 MG, QD
     Route: 042
     Dates: start: 20180727
  122. INTROPIN [Concomitant]
     Active Substance: DOPAMINE HYDROCHLORIDE
     Indication: PRODUCT USED FOR UNKNOWN INDICATION
     Dosage: 1600 MCG/ML, CONTINUOUS
     Route: 065
     Dates: start: 20180824
  123. OXYMETAZOLINE [Concomitant]
     Active Substance: OXYMETAZOLINE
     Indication: PRODUCT USED FOR UNKNOWN INDICATION
     Dosage: UNK
     Route: 045
     Dates: start: 20180711
  124. BENADRYL [Concomitant]
     Active Substance: DIPHENHYDRAMINE HYDROCHLORIDE
     Dosage: 50 MG, PRN
     Route: 065
     Dates: start: 20180509
  125. BENADRYL [Concomitant]
     Active Substance: DIPHENHYDRAMINE HYDROCHLORIDE
     Dosage: 25 MG, PRN
     Route: 065
     Dates: start: 20180606
  126. PROVENTIL [Concomitant]
     Active Substance: ALBUTEROL
     Dosage: 2.5 MG/ML, PRN
     Route: 055
     Dates: start: 20180417
  127. MAXIPIME [Concomitant]
     Active Substance: CEFEPIME HYDROCHLORIDE
     Dosage: UNK UNK, Q8H
     Route: 065
     Dates: start: 20180426
  128. SENOKOT [Concomitant]
     Active Substance: SENNOSIDES
     Indication: PRODUCT USED FOR UNKNOWN INDICATION
     Dosage: 17.2 MG, PRN
     Route: 065
     Dates: start: 20180409
  129. LASIX [Concomitant]
     Active Substance: FUROSEMIDE
     Dosage: 20 MG, QD
     Route: 065
     Dates: start: 20180419
  130. LASIX [Concomitant]
     Active Substance: FUROSEMIDE
     Dosage: 10 MG, QD
     Route: 065
     Dates: start: 20180511
  131. MELATONIN [Concomitant]
     Active Substance: MELATONIN
     Indication: PRODUCT USED FOR UNKNOWN INDICATION
     Dosage: 3 MG, BED TIME
     Route: 065
  132. SODIUM CHLORIDE. [Concomitant]
     Active Substance: SODIUM CHLORIDE
     Indication: PRODUCT USED FOR UNKNOWN INDICATION
     Dosage: 0.9 %, PRN
     Route: 065
     Dates: start: 20180403
  133. SODIUM CHLORIDE. [Concomitant]
     Active Substance: SODIUM CHLORIDE
     Dosage: 0.9 %, PRN
     Route: 065
     Dates: start: 20180822
  134. SUBLIMAZE [Concomitant]
     Active Substance: FENTANYL CITRATE
     Indication: PRODUCT USED FOR UNKNOWN INDICATION
     Dosage: 50 MCG, ONCE
     Route: 065
     Dates: start: 20180721, end: 20180721
  135. SUBLIMAZE [Concomitant]
     Active Substance: FENTANYL CITRATE
     Dosage: 50 MCG, QD
     Route: 065
     Dates: start: 20180809, end: 20180809
  136. SUBLIMAZE [Concomitant]
     Active Substance: FENTANYL CITRATE
     Dosage: 25 MCG, EVERY 2 MINUTES PRN
     Route: 065
     Dates: start: 20180830, end: 20180901
  137. NORCURON [Concomitant]
     Active Substance: VECURONIUM BROMIDE
     Dosage: 5.72 MG, ONCE
     Route: 065
     Dates: start: 20180729
  138. MAGNESIUM [Concomitant]
     Active Substance: MAGNESIUM
     Dosage: UNK, QD
     Route: 065
     Dates: start: 20180723
  139. MAGNESIUM [Concomitant]
     Active Substance: MAGNESIUM
     Dosage: UNK, QD
     Route: 065
     Dates: start: 20180724
  140. MAGNESIUM [Concomitant]
     Active Substance: MAGNESIUM
     Dosage: UNK, QD
     Route: 065
     Dates: start: 20180729
  141. MAGNESIUM [Concomitant]
     Active Substance: MAGNESIUM
     Dosage: UNK, QD
     Route: 065
     Dates: start: 20180827
  142. DOPAMINE IN DEXTROSE [Concomitant]
     Indication: PRODUCT USED FOR UNKNOWN INDICATION
     Dosage: 3200 MCG/ML, UNK
     Route: 065
     Dates: start: 20180829, end: 20180829
  143. LIDOCAINE. [Concomitant]
     Active Substance: LIDOCAINE
     Dosage: UNK ML, QD
     Route: 065
     Dates: start: 20180622
  144. VASOSTRICT [Concomitant]
     Active Substance: VASOPRESSIN
     Indication: PRODUCT USED FOR UNKNOWN INDICATION
     Dosage: UNK
     Route: 065
     Dates: start: 20180720
  145. SOLU-CORTEF [Concomitant]
     Active Substance: HYDROCORTISONE SODIUM SUCCINATE
     Dosage: 50 MG, PRN
     Route: 065
     Dates: start: 20180417
  146. SOLU-CORTEF [Concomitant]
     Active Substance: HYDROCORTISONE SODIUM SUCCINATE
     Dosage: 50 MG, PRN
     Route: 065
     Dates: start: 20180512
  147. SOLU-CORTEF [Concomitant]
     Active Substance: HYDROCORTISONE SODIUM SUCCINATE
     Dosage: 100 MG, EVERY 8 HOURS
     Route: 065
     Dates: start: 20180802
  148. SOLU-CORTEF [Concomitant]
     Active Substance: HYDROCORTISONE SODIUM SUCCINATE
     Dosage: 15 MG, EVERY 6 HOURS
     Route: 065
     Dates: start: 20180817
  149. LEVOPHED [Concomitant]
     Active Substance: NOREPINEPHRINE BITARTRATE
     Dosage: 8 MG, UNK
     Route: 065
     Dates: start: 20180801
  150. MEPHYTON [Concomitant]
     Active Substance: PHYTONADIONE
     Indication: PRODUCT USED FOR UNKNOWN INDICATION
     Route: 065
  151. ARTIFICIAL TEARS [Concomitant]
     Active Substance: GLYCERIN\HYPROMELLOSES\POLYETHYLENE GLYCOL 400
     Indication: PRODUCT USED FOR UNKNOWN INDICATION
     Route: 065
  152. KETALAR [Concomitant]
     Active Substance: KETAMINE HYDROCHLORIDE
     Dosage: 25 MG, EVERY 5 MIN
     Route: 065
     Dates: start: 20180829
  153. XYLOCAINE [Concomitant]
     Active Substance: LIDOCAINE HYDROCHLORIDE
     Indication: PRODUCT USED FOR UNKNOWN INDICATION
     Dosage: 10 MG/ML, QD
     Route: 065
     Dates: start: 20180722
  154. REMERON [Concomitant]
     Active Substance: MIRTAZAPINE
     Indication: PRODUCT USED FOR UNKNOWN INDICATION
     Route: 065
  155. ZYLOPRIM [Concomitant]
     Active Substance: ALLOPURINOL
     Dosage: 200 MG, TID
     Route: 065
     Dates: start: 20180331
  156. NEURONTIN [Concomitant]
     Active Substance: GABAPENTIN
     Indication: PRODUCT USED FOR UNKNOWN INDICATION
     Dosage: 600 MG, TID
     Route: 065
     Dates: start: 20180330
  157. HEPARIN [Concomitant]
     Active Substance: HEPARIN SODIUM
     Dosage: 1575 U, PRN
     Route: 065
     Dates: start: 20180403
  158. HEPARIN [Concomitant]
     Active Substance: HEPARIN SODIUM
     Dosage: 20 U, PRN
     Route: 065
     Dates: start: 20180502
  159. OMNIPAQUE [Concomitant]
     Active Substance: IOHEXOL
     Dosage: UNK
     Route: 065
     Dates: start: 20180530
  160. ATIVAN [Concomitant]
     Active Substance: LORAZEPAM
     Dosage: 2 MG, QD
     Route: 065
     Dates: start: 20180507
  161. MORPHINE [Concomitant]
     Active Substance: MORPHINE
     Indication: PRODUCT USED FOR UNKNOWN INDICATION
     Dosage: 3.16 MG, PRN
     Route: 065
     Dates: start: 20180402
  162. NARCAN [Concomitant]
     Active Substance: NALOXONE HYDROCHLORIDE
     Indication: PRODUCT USED FOR UNKNOWN INDICATION
     Route: 065
  163. ZOFRAN [Concomitant]
     Active Substance: ONDANSETRON HYDROCHLORIDE
     Indication: PRODUCT USED FOR UNKNOWN INDICATION
     Dosage: UNK, Q8H PRN
     Route: 065
     Dates: start: 20180330
  164. TYLENOL [Concomitant]
     Active Substance: ACETAMINOPHEN
     Dosage: 650 MG, PRN
     Route: 065
     Dates: start: 20180403
  165. TYLENOL [Concomitant]
     Active Substance: ACETAMINOPHEN
     Dosage: 650 MG, PRN
     Route: 065
     Dates: start: 20180418
  166. TYLENOL [Concomitant]
     Active Substance: ACETAMINOPHEN
     Dosage: 650 MG, PRN
     Route: 065
     Dates: start: 20180426
  167. TYLENOL [Concomitant]
     Active Substance: ACETAMINOPHEN
     Dosage: 1000 MG, PRN
     Route: 065
     Dates: start: 20180524
  168. DILAUDID [Concomitant]
     Active Substance: HYDROMORPHONE HYDROCHLORIDE
     Indication: PRODUCT USED FOR UNKNOWN INDICATION
     Dosage: 0.5 MG, UNK
     Route: 065
     Dates: start: 20180502
  169. DILAUDID [Concomitant]
     Active Substance: HYDROMORPHONE HYDROCHLORIDE
     Dosage: UNK
     Route: 065
     Dates: start: 20180809
  170. CALCIUM [Concomitant]
     Active Substance: CALCIUM
     Dosage: 500 MG, QD
     Route: 042
     Dates: start: 20180814
  171. LEVAQUIN [Concomitant]
     Active Substance: LEVOFLOXACIN
  172. BENADRYL [Concomitant]
     Active Substance: DIPHENHYDRAMINE HYDROCHLORIDE
     Dosage: 50 MG, PRN
     Route: 065
     Dates: start: 20180417
  173. MAXIPIME [Concomitant]
     Active Substance: CEFEPIME HYDROCHLORIDE
     Indication: PRODUCT USED FOR UNKNOWN INDICATION
     Dosage: UNK UNK, Q8H
     Route: 065
     Dates: start: 20180408
  174. LASIX [Concomitant]
     Active Substance: FUROSEMIDE
     Dosage: 10 MG, QD
     Route: 065
     Dates: start: 20180506
  175. TENOFOVIR [Concomitant]
     Active Substance: TENOFOVIR
     Indication: PRODUCT USED FOR UNKNOWN INDICATION
     Route: 065
  176. SWEET EASE [Concomitant]
     Indication: PRODUCT USED FOR UNKNOWN INDICATION
     Route: 065
  177. SODIUM CHLORIDE. [Concomitant]
     Active Substance: SODIUM CHLORIDE
     Dosage: 0.9 %, PRN
     Route: 065
     Dates: start: 20180801, end: 20180901
  178. SUBLIMAZE [Concomitant]
     Active Substance: FENTANYL CITRATE
     Dosage: 50 MCG, QD
     Route: 065
     Dates: start: 20180807, end: 20180807
  179. SUBLIMAZE [Concomitant]
     Active Substance: FENTANYL CITRATE
     Dosage: 25 MCG, EVERY 2 MINUTES PRN
     Route: 065
     Dates: start: 20180830, end: 20180901
  180. ACETAMINOPHEN. [Concomitant]
     Active Substance: ACETAMINOPHEN
     Indication: PRODUCT USED FOR UNKNOWN INDICATION
     Dosage: 500 MG, ONCE
     Route: 042
     Dates: start: 20180831, end: 20180831
  181. ALBUMIN [Concomitant]
     Active Substance: ALBUMIN HUMAN
     Dosage: 500 ML, UNK
     Route: 065
     Dates: start: 20180722, end: 20180722
  182. ALBUMIN [Concomitant]
     Active Substance: ALBUMIN HUMAN
     Dosage: 250 ML, ONCE/SINGLE
     Route: 065
     Dates: start: 20180806, end: 20180806
  183. ALBUMIN [Concomitant]
     Active Substance: ALBUMIN HUMAN
     Dosage: 60 ML, QD
     Route: 065
     Dates: start: 20180811, end: 20180811
  184. ALBUMIN [Concomitant]
     Active Substance: ALBUMIN HUMAN
     Dosage: 75 ML, EVERY HOUR
     Route: 065
     Dates: start: 20180827, end: 20180827
  185. ALBUMIN [Concomitant]
     Active Substance: ALBUMIN HUMAN
     Dosage: 150 ML, EVERY HOUR
     Route: 065
     Dates: start: 20180829, end: 20180830
  186. OFIRMEV [Concomitant]
     Active Substance: ACETAMINOPHEN
     Dosage: 500 MG, QD
     Route: 042
     Dates: start: 20180424
  187. MAGNESIUM [Concomitant]
     Active Substance: MAGNESIUM
     Indication: PRODUCT USED FOR UNKNOWN INDICATION
     Dosage: UNK, QD
     Route: 065
     Dates: start: 20180721
  188. ADRENALIN [Concomitant]
     Active Substance: EPINEPHRINE
     Dosage: 1 MG/ML, PRN
     Route: 065
     Dates: start: 20180410
  189. ADRENALIN [Concomitant]
     Active Substance: EPINEPHRINE
     Dosage: UNK
     Route: 065
     Dates: start: 20180725
  190. ADRENALIN [Concomitant]
     Active Substance: EPINEPHRINE
     Dosage: UNK
     Route: 065
     Dates: start: 20180727
  191. ADRENALIN [Concomitant]
     Active Substance: EPINEPHRINE
     Dosage: UNK, PRN
     Route: 065
     Dates: start: 20180826
  192. SODIUM CITRATE. [Concomitant]
     Active Substance: SODIUM CITRATE
     Dosage: UNK ONCE
     Route: 065
     Dates: start: 20180403
  193. NEMBUTAL SODIUM [Concomitant]
     Active Substance: PENTOBARBITAL SODIUM
     Indication: PRODUCT USED FOR UNKNOWN INDICATION
     Route: 065
  194. MERREM [Concomitant]
     Active Substance: MEROPENEM
     Indication: PRODUCT USED FOR UNKNOWN INDICATION
     Dosage: UNK
     Route: 065
     Dates: start: 20180410
  195. SOLU-CORTEF [Concomitant]
     Active Substance: HYDROCORTISONE SODIUM SUCCINATE
     Dosage: 25 MG, EVERY 6 HOURS
     Route: 065
     Dates: start: 20180807
  196. SOLU-CORTEF [Concomitant]
     Active Substance: HYDROCORTISONE SODIUM SUCCINATE
     Dosage: 16.5MG, EVERY 6 HOURS
     Route: 065
     Dates: start: 20180816
  197. SOLU-CORTEF [Concomitant]
     Active Substance: HYDROCORTISONE SODIUM SUCCINATE
     Dosage: 8 MG, EVERY 6 HOURS
     Route: 065
     Dates: start: 20180820
  198. SINUS RINSE [Concomitant]
     Active Substance: SODIUM BICARBONATE\SODIUM CHLORIDE
     Indication: PRODUCT USED FOR UNKNOWN INDICATION
     Route: 065
  199. NOVOSEVEN [Concomitant]
     Active Substance: COAGULATION FACTOR VIIA RECOMBINANT HUMAN
     Indication: PRODUCT USED FOR UNKNOWN INDICATION
     Route: 065
  200. XYLOCAINE [Concomitant]
     Active Substance: LIDOCAINE HYDROCHLORIDE
     Dosage: 10 MG/ML, QD
     Route: 065
     Dates: start: 20180801
  201. CANCIDAS [Concomitant]
     Active Substance: CASPOFUNGIN ACETATE
     Indication: PRODUCT USED FOR UNKNOWN INDICATION
     Dosage: 50 MG, QD
     Route: 065
     Dates: start: 20180403
  202. HEPARIN [Concomitant]
     Active Substance: HEPARIN SODIUM
     Dosage: 50 U, PRN
     Route: 065
     Dates: start: 20180411
  203. PLASMALYTE [Concomitant]
     Active Substance: ELECTROLYTES NOS
     Indication: PRODUCT USED FOR UNKNOWN INDICATION
     Route: 065
  204. ATIVAN [Concomitant]
     Active Substance: LORAZEPAM
     Indication: PRODUCT USED FOR UNKNOWN INDICATION
     Dosage: 2 MG, PRN
     Route: 065
     Dates: start: 20180502
  205. ATIVAN [Concomitant]
     Active Substance: LORAZEPAM
     Dosage: 0.5 MG, Q3H PRN
     Route: 065
     Dates: start: 20180829
  206. ZOFRAN [Concomitant]
     Active Substance: ONDANSETRON HYDROCHLORIDE
     Dosage: UNK, Q8H PRN
     Route: 065
     Dates: start: 20180518
  207. TYLENOL [Concomitant]
     Active Substance: ACETAMINOPHEN
     Dosage: 650 MG, PRN
     Route: 065
     Dates: start: 20180408
  208. TYLENOL [Concomitant]
     Active Substance: ACETAMINOPHEN
     Dosage: 650 MG, PRN
     Route: 065
     Dates: start: 20180416
  209. TYLENOL [Concomitant]
     Active Substance: ACETAMINOPHEN
     Dosage: 650 MG, PRN
     Route: 065
     Dates: start: 20180422
  210. TYLENOL [Concomitant]
     Active Substance: ACETAMINOPHEN
     Dosage: 650 MG, PRN
     Route: 065
     Dates: start: 20180427
  211. DILAUDID [Concomitant]
     Active Substance: HYDROMORPHONE HYDROCHLORIDE
     Dosage: 2.5 MG, ONCE
     Route: 065
     Dates: start: 20180826
  212. ROXICODONE [Concomitant]
     Active Substance: OXYCODONE HYDROCHLORIDE
     Dosage: 5 MG, PRN
     Route: 065
     Dates: start: 20180330
  213. BENADRYL [Concomitant]
     Active Substance: DIPHENHYDRAMINE HYDROCHLORIDE
     Indication: PRODUCT USED FOR UNKNOWN INDICATION
     Dosage: 50 MG, PRN
     Route: 065
     Dates: start: 20180403
  214. BENADRYL [Concomitant]
     Active Substance: DIPHENHYDRAMINE HYDROCHLORIDE
     Dosage: 50 MG, PRN
     Route: 065
     Dates: start: 20180512
  215. MIRALAX [Concomitant]
     Active Substance: POLYETHYLENE GLYCOL 3350
     Indication: PRODUCT USED FOR UNKNOWN INDICATION
     Dosage: 17 G, UNK
     Route: 065
     Dates: start: 20180409
  216. KLOR-CON [Concomitant]
     Active Substance: POTASSIUM CHLORIDE
     Dosage: 20 MEQ, QD
     Route: 065
     Dates: start: 20180421
  217. APRESOLINE HYDROCHLORIDE [Concomitant]
     Active Substance: HYDRALAZINE HYDROCHLORIDE
     Dosage: 20 MG, Q4H
     Route: 065
     Dates: start: 20180509
  218. SUBLIMAZE [Concomitant]
     Active Substance: FENTANYL CITRATE
     Dosage: 75 MCG, EVERY 5 MINUTE PRN
     Route: 065
     Dates: start: 20180725, end: 20180727
  219. SUBLIMAZE [Concomitant]
     Active Substance: FENTANYL CITRATE
     Dosage: 50 MCG, PRN
     Route: 065
     Dates: start: 20180823, end: 20180823
  220. ALBUMIN [Concomitant]
     Active Substance: ALBUMIN HUMAN
     Dosage: 210 ML, UNK
     Route: 065
     Dates: start: 20180723, end: 20180723
  221. ALBUMIN [Concomitant]
     Active Substance: ALBUMIN HUMAN
     Dosage: 200 ML, QD
     Route: 065
     Dates: start: 20180812, end: 20180812
  222. ALBUMIN [Concomitant]
     Active Substance: ALBUMIN HUMAN
     Dosage: 75 ML, EVERY HOUR
     Route: 065
     Dates: start: 20180830, end: 20180901
  223. MAGNESIUM [Concomitant]
     Active Substance: MAGNESIUM
     Dosage: UNK, QD
     Route: 065
     Dates: start: 20180726
  224. MAGNESIUM [Concomitant]
     Active Substance: MAGNESIUM
     Dosage: UNK, QD
     Route: 065
     Dates: start: 20180803
  225. LIDOCAINE. [Concomitant]
     Active Substance: LIDOCAINE
     Dosage: 0.25 ML, QD
     Route: 065
     Dates: start: 20180411
  226. KEPPRA [Concomitant]
     Active Substance: LEVETIRACETAM
     Indication: PRODUCT USED FOR UNKNOWN INDICATION
     Route: 065
  227. ADRENALIN [Concomitant]
     Active Substance: EPINEPHRINE
     Dosage: UNK
     Route: 065
     Dates: start: 20180726
  228. ADRENALIN [Concomitant]
     Active Substance: EPINEPHRINE
     Dosage: UNK, PRN
     Route: 065
     Dates: start: 20180801
  229. AFRIN [Concomitant]
     Active Substance: OXYMETAZOLINE
     Indication: PRODUCT USED FOR UNKNOWN INDICATION
     Route: 065
  230. SOLU-MEDROL [Concomitant]
     Active Substance: METHYLPREDNISOLONE SODIUM SUCCINATE
     Dosage: 63 MG, QD
     Route: 065
     Dates: start: 20180417
  231. SYLVANT [Concomitant]
     Active Substance: SILTUXIMAB
     Indication: PRODUCT USED FOR UNKNOWN INDICATION
     Route: 065
  232. SANDOSTATIN [Concomitant]
     Active Substance: OCTREOTIDE ACETATE
     Indication: PRODUCT USED FOR UNKNOWN INDICATION
     Route: 065
  233. CANCIDAS [Concomitant]
     Active Substance: CASPOFUNGIN ACETATE
     Dosage: 50 MG, QD
     Route: 065
     Dates: start: 20180531
  234. COLACE [Concomitant]
     Active Substance: DOCUSATE SODIUM
     Indication: PRODUCT USED FOR UNKNOWN INDICATION
     Dosage: 250 MG, BID PRN
     Route: 065
     Dates: start: 20180405
  235. COLACE [Concomitant]
     Active Substance: DOCUSATE SODIUM
     Dosage: 250 MG, BID PRN
     Route: 065
     Dates: start: 20180409
  236. ZYLOPRIM [Concomitant]
     Active Substance: ALLOPURINOL
     Indication: PRODUCT USED FOR UNKNOWN INDICATION
     Dosage: 200 MG, Q8H
     Route: 065
     Dates: start: 20180330
  237. HEPARIN [Concomitant]
     Active Substance: HEPARIN SODIUM
     Dosage: 20 U, PRN
     Route: 065
     Dates: start: 20180410
  238. HEPARIN [Concomitant]
     Active Substance: HEPARIN SODIUM
     Dosage: 500 U, PRN
     Route: 065
     Dates: start: 20180508
  239. HEPARIN [Concomitant]
     Active Substance: HEPARIN SODIUM
     Dosage: 500 U, PRN
     Route: 065
     Dates: start: 20180509
  240. VANCOCIN [Concomitant]
     Active Substance: VANCOMYCIN HYDROCHLORIDE
     Indication: PRODUCT USED FOR UNKNOWN INDICATION
     Dosage: 1000 MG, UNK
     Route: 042
     Dates: start: 20180410
  241. VANCOCIN [Concomitant]
     Active Substance: VANCOMYCIN HYDROCHLORIDE
     Dosage: 1000 MG, UNK
     Route: 042
     Dates: start: 20180529
  242. LIDODERM [Concomitant]
     Active Substance: LIDOCAINE
     Indication: PRODUCT USED FOR UNKNOWN INDICATION
     Route: 065
  243. TYLENOL [Concomitant]
     Active Substance: ACETAMINOPHEN
     Dosage: 650 MG, PRN
     Route: 065
     Dates: start: 20180425
  244. TYLENOL [Concomitant]
     Active Substance: ACETAMINOPHEN
     Dosage: 650 MG, PRN
     Route: 065
     Dates: start: 20180428
  245. DILAUDID [Concomitant]
     Active Substance: HYDROMORPHONE HYDROCHLORIDE
     Dosage: 2.9 MG, EVERY 2 HOURS PRN
     Route: 065
     Dates: start: 20180823
  246. CALCIUM [Concomitant]
     Active Substance: CALCIUM
     Dosage: 2000 MG, QD
     Route: 042
     Dates: start: 20180830
  247. PEPCID [Concomitant]
     Active Substance: FAMOTIDINE
     Indication: PRODUCT USED FOR UNKNOWN INDICATION
     Dosage: DAILY
     Route: 065
  248. ROXICODONE [Concomitant]
     Active Substance: OXYCODONE HYDROCHLORIDE
     Indication: PRODUCT USED FOR UNKNOWN INDICATION
     Dosage: 5 MG, Q4H
     Route: 065
     Dates: start: 20180404
  249. BENADRYL [Concomitant]
     Active Substance: DIPHENHYDRAMINE HYDROCHLORIDE
     Dosage: 25 MG, PRN
     Route: 065
     Dates: start: 20180530
  250. PROVENTIL [Concomitant]
     Active Substance: ALBUTEROL
     Dosage: 2.5 MG/ML, PRN
     Route: 055
     Dates: start: 20180410
  251. KLOR-CON [Concomitant]
     Active Substance: POTASSIUM CHLORIDE
     Indication: PRODUCT USED FOR UNKNOWN INDICATION
     Dosage: 20 MEQ, UNK
     Route: 065
     Dates: start: 20180410
  252. WELLCOVORIN [Concomitant]
     Active Substance: LEUCOVORIN CALCIUM
     Indication: PRODUCT USED FOR UNKNOWN INDICATION
     Dosage: 10 MG, BID
     Route: 065
     Dates: start: 20180503
  253. LASIX [Concomitant]
     Active Substance: FUROSEMIDE
     Indication: PRODUCT USED FOR UNKNOWN INDICATION
     Dosage: 10 MG, QD
     Route: 065
     Dates: start: 20180418
  254. NORVASC [Concomitant]
     Active Substance: AMLODIPINE BESYLATE
     Indication: PRODUCT USED FOR UNKNOWN INDICATION
     Dosage: 2.5 MG, QD
     Route: 065
     Dates: start: 20180501
  255. VEPESID [Concomitant]
     Active Substance: ETOPOSIDE
     Indication: PRODUCT USED FOR UNKNOWN INDICATION
     Dosage: UNK UNK, QD
     Route: 065
     Dates: start: 20180509
  256. INTRALIPID [Concomitant]
     Active Substance: EGG PHOSPHOLIPIDS\GLYCERIN\SOYBEAN OIL
     Indication: PRODUCT USED FOR UNKNOWN INDICATION
     Dosage: 60 G, UNK
     Route: 065
     Dates: start: 20180512
  257. VIOKACE [Concomitant]
     Active Substance: PANCRELIPASE AMYLASE\PANCRELIPASE LIPASE\PANCRELIPASE PROTEASE
     Indication: PRODUCT USED FOR UNKNOWN INDICATION
     Dosage: UNK UNK, QD
     Route: 065
     Dates: start: 20180524
  258. SUBLIMAZE [Concomitant]
     Active Substance: FENTANYL CITRATE
     Dosage: 100 MCG, EVERY ONE HOUR PRN
     Route: 065
     Dates: start: 20180726, end: 20180730
  259. SUBLIMAZE [Concomitant]
     Active Substance: FENTANYL CITRATE
     Dosage: 50 MCG, EVERY 1 MINUTE PRN
     Route: 065
     Dates: start: 20180831, end: 20180901
  260. SUBLIMAZE [Concomitant]
     Active Substance: FENTANYL CITRATE
     Dosage: UNK
     Dates: start: 20180720, end: 20180809
  261. ALBUMIN [Concomitant]
     Active Substance: ALBUMIN HUMAN
     Dosage: 250 ML, UNK
     Route: 065
     Dates: start: 20180726, end: 20180726
  262. ALBUMIN [Concomitant]
     Active Substance: ALBUMIN HUMAN
     Dosage: 60 ML, QD
     Route: 065
     Dates: start: 20180810, end: 20180810
  263. ALBUMIN [Concomitant]
     Active Substance: ALBUMIN HUMAN
     Dosage: 50 ML, QD
     Route: 065
     Dates: start: 20180819, end: 20180819
  264. OFIRMEV [Concomitant]
     Active Substance: ACETAMINOPHEN
     Dosage: 600 MG, QD
     Route: 042
     Dates: start: 20180412
  265. OFIRMEV [Concomitant]
     Active Substance: ACETAMINOPHEN
     Dosage: 650 MG, QD
     Route: 042
     Dates: start: 20180416
  266. OFIRMEV [Concomitant]
     Active Substance: ACETAMINOPHEN
     Dosage: 1000 MG, QD
     Route: 042
     Dates: start: 20180430
  267. OFIRMEV [Concomitant]
     Active Substance: ACETAMINOPHEN
     Dosage: 500 MG, UNK
     Route: 042
     Dates: start: 20180830, end: 20180830
  268. OFIRMEV [Concomitant]
     Active Substance: ACETAMINOPHEN
     Dosage: 500 MG, UNK
     Route: 042
     Dates: start: 20180831
  269. CALCIUM [Concomitant]
     Active Substance: CALCIUM
     Dosage: 100 MG/ML, QD
     Route: 065
     Dates: start: 20180731
  270. CALCIUM [Concomitant]
     Active Substance: CALCIUM
     Dosage: 100 MG/ML, QD
     Route: 065
     Dates: start: 20180829
  271. SODIUM BICARBONATE. [Concomitant]
     Active Substance: SODIUM BICARBONATE
     Indication: PRODUCT USED FOR UNKNOWN INDICATION
     Dosage: 50 MEQ, QD
     Route: 065
     Dates: start: 20180829
  272. VERSED [Concomitant]
     Active Substance: MIDAZOLAM HYDROCHLORIDE
     Indication: PRODUCT USED FOR UNKNOWN INDICATION
     Route: 065
  273. VASOPRESSIN. [Concomitant]
     Active Substance: VASOPRESSIN
     Indication: PRODUCT USED FOR UNKNOWN INDICATION
     Route: 065
  274. HUMULIN NOS [Concomitant]
     Active Substance: INSULIN HUMAN
     Indication: PRODUCT USED FOR UNKNOWN INDICATION
     Route: 065
  275. ADRENALIN [Concomitant]
     Active Substance: EPINEPHRINE
     Indication: PRODUCT USED FOR UNKNOWN INDICATION
     Dosage: 1 MG/ML, PRN
     Route: 065
     Dates: start: 20180403
  276. ADRENALIN [Concomitant]
     Active Substance: EPINEPHRINE
     Dosage: UNK
     Route: 065
     Dates: start: 20180722
  277. ADRENALIN [Concomitant]
     Active Substance: EPINEPHRINE
     Dosage: UNK
     Route: 065
     Dates: start: 20180729
  278. BUMEX [Concomitant]
     Active Substance: BUMETANIDE
     Indication: PRODUCT USED FOR UNKNOWN INDICATION
     Route: 065
  279. CYTOVENE IV [Concomitant]
     Active Substance: GANCICLOVIR SODIUM
     Indication: PRODUCT USED FOR UNKNOWN INDICATION
     Route: 065
  280. TRANSDERM SCOP [Concomitant]
     Active Substance: SCOPOLAMINE
     Indication: PRODUCT USED FOR UNKNOWN INDICATION
     Route: 065
  281. ALCAINE [Concomitant]
     Active Substance: PROPARACAINE HYDROCHLORIDE
     Indication: PRODUCT USED FOR UNKNOWN INDICATION
     Route: 065
  282. SOLU-CORTEF [Concomitant]
     Active Substance: HYDROCORTISONE SODIUM SUCCINATE
     Dosage: 65 MG, PRN
     Route: 065
     Dates: start: 20180509
  283. SOLU-CORTEF [Concomitant]
     Active Substance: HYDROCORTISONE SODIUM SUCCINATE
     Dosage: 25 MG, EVERY 6 HOURS
     Route: 065
     Dates: start: 20180808
  284. SOLU-CORTEF [Concomitant]
     Active Substance: HYDROCORTISONE SODIUM SUCCINATE
     Dosage: 25 MG, EVERY 8 HOURS
     Route: 065
     Dates: start: 20180809
  285. LEVOPHED [Concomitant]
     Active Substance: NOREPINEPHRINE BITARTRATE
     Indication: PRODUCT USED FOR UNKNOWN INDICATION
     Dosage: 8 MG, UNK
     Route: 065
     Dates: start: 20180721
  286. LEVOPHED [Concomitant]
     Active Substance: NOREPINEPHRINE BITARTRATE
     Dosage: 4 MG, UNK
     Route: 065
     Dates: start: 20180723
  287. LEVOPHED [Concomitant]
     Active Substance: NOREPINEPHRINE BITARTRATE
     Dosage: 8 MG, UNK
     Route: 065
     Dates: start: 20180828
  288. AMICAR [Concomitant]
     Active Substance: AMINOCAPROIC ACID
     Indication: PRODUCT USED FOR UNKNOWN INDICATION
     Route: 065
  289. KETALAR [Concomitant]
     Active Substance: KETAMINE HYDROCHLORIDE
     Indication: PRODUCT USED FOR UNKNOWN INDICATION
     Dosage: 30 MG, EVERY 5 MIN
     Route: 065
     Dates: start: 20180826
  290. CANCIDAS [Concomitant]
     Active Substance: CASPOFUNGIN ACETATE
     Dosage: 50 MG, QD
     Route: 065
     Dates: start: 20180508
  291. HEPARIN [Concomitant]
     Active Substance: HEPARIN SODIUM
     Dosage: 50 U, PRN
     Route: 065
     Dates: start: 20180409
  292. ATIVAN [Concomitant]
     Active Substance: LORAZEPAM
     Dosage: 0.5 MG, Q6H
     Route: 065
     Dates: start: 20180511
  293. ATIVAN [Concomitant]
     Active Substance: LORAZEPAM
     Dosage: 0.5 MG, Q6H
     Route: 065
     Dates: start: 20180516
  294. ATIVAN [Concomitant]
     Active Substance: LORAZEPAM
     Dosage: 0.25 MG, Q6H
     Route: 065
     Dates: start: 20180523
  295. VALIUM [Concomitant]
     Active Substance: DIAZEPAM
     Indication: PRODUCT USED FOR UNKNOWN INDICATION
     Route: 065
  296. TYLENOL [Concomitant]
     Active Substance: ACETAMINOPHEN
     Dosage: 650 MG, PRN
     Route: 065
     Dates: start: 20180415
  297. TYLENOL [Concomitant]
     Active Substance: ACETAMINOPHEN
     Dosage: 650 MG, PRN
     Route: 065
     Dates: start: 20180420
  298. TYLENOL [Concomitant]
     Active Substance: ACETAMINOPHEN
     Dosage: 1000 MG, PRN
     Route: 065
     Dates: start: 20180528
  299. KINERET [Concomitant]
     Active Substance: ANAKINRA
     Indication: PRODUCT USED FOR UNKNOWN INDICATION
     Route: 065
  300. DILAUDID [Concomitant]
     Active Substance: HYDROMORPHONE HYDROCHLORIDE
     Dosage: 2.8 MG, ONCE
     Route: 065
     Dates: start: 20180829
  301. CALCIUM [Concomitant]
     Active Substance: CALCIUM
     Dosage: 1000 MG, QD
     Route: 042
     Dates: start: 20180825
  302. CALCIUM [Concomitant]
     Active Substance: CALCIUM
     Dosage: 2000 MG, QD
     Route: 042
     Dates: start: 20180826
  303. INTROPIN [Concomitant]
     Active Substance: DOPAMINE HYDROCHLORIDE
     Dosage: 1600 MCG/ML, CONTINUOUS
     Route: 065
     Dates: start: 20180829
  304. PROVENTIL [Concomitant]
     Active Substance: ALBUTEROL
     Indication: PRODUCT USED FOR UNKNOWN INDICATION
     Dosage: 2.5 MG/ML, PRN
     Route: 055
     Dates: start: 20180403
  305. PROVENTIL [Concomitant]
     Active Substance: ALBUTEROL
     Dosage: 2.5 MG/ML, Q4H
     Route: 055
     Dates: start: 20180606
  306. SENOKOT [Concomitant]
     Active Substance: SENNOSIDES
     Dosage: 17.2 MG, PRN
     Route: 065
     Dates: start: 20180417
  307. SENOKOT [Concomitant]
     Active Substance: SENNOSIDES
     Dosage: 17.2 MG, PRN
     Route: 065
     Dates: start: 20180426
  308. VITAMIN D3 [Concomitant]
     Active Substance: CHOLECALCIFEROL
     Indication: PRODUCT USED FOR UNKNOWN INDICATION
     Dosage: 2000 U, BID
     Route: 065
     Dates: start: 20180418
  309. MIACALCIN [Concomitant]
     Active Substance: CALCITONIN SALMON
     Indication: PRODUCT USED FOR UNKNOWN INDICATION
     Dosage: 250 U, BID
     Route: 065
     Dates: start: 20180424
  310. METRONIDAZOLE. [Concomitant]
     Active Substance: METRONIDAZOLE
     Indication: PRODUCT USED FOR UNKNOWN INDICATION
     Dosage: UNK
     Route: 065
     Dates: start: 20180509
  311. NOXAFIL [Concomitant]
     Active Substance: POSACONAZOLE
     Indication: PRODUCT USED FOR UNKNOWN INDICATION
     Dosage: 200 MG, UNK
     Route: 065
     Dates: start: 20180510
  312. DIURIL [Concomitant]
     Active Substance: CHLOROTHIAZIDE
     Indication: PRODUCT USED FOR UNKNOWN INDICATION
     Dosage: UNK
     Route: 065
     Dates: start: 20180510
  313. AMPHOTERICIN B. [Concomitant]
     Active Substance: AMPHOTERICIN B
     Indication: PRODUCT USED FOR UNKNOWN INDICATION
     Route: 065
  314. DOTAREM [Concomitant]
     Active Substance: GADOTERATE MEGLUMINE
     Indication: PRODUCT USED FOR UNKNOWN INDICATION
     Route: 065
  315. GADAVIST [Concomitant]
     Active Substance: GADOBUTROL
     Dosage: 10 ML, QD
     Route: 065
     Dates: start: 20180416
  316. SODIUM CHLORIDE. [Concomitant]
     Active Substance: SODIUM CHLORIDE
     Dosage: 0.9 %, PRN
     Route: 065
     Dates: start: 20180409
  317. SODIUM CHLORIDE. [Concomitant]
     Active Substance: SODIUM CHLORIDE
     Dosage: 50 ML, UNK
     Route: 065
     Dates: start: 20180830, end: 20180830
  318. SUBLIMAZE [Concomitant]
     Active Substance: FENTANYL CITRATE
     Dosage: 75 MCG, EVERY 1 HOUR PRN
     Route: 065
     Dates: start: 20180723, end: 20180726
  319. SUBLIMAZE [Concomitant]
     Active Substance: FENTANYL CITRATE
     Dosage: 25MCG, EVERY ONE HOUR PRN
     Route: 065
     Dates: start: 20180730, end: 20180803
  320. SUBLIMAZE [Concomitant]
     Active Substance: FENTANYL CITRATE
     Dosage: 50 MCG, EVERY ONE HOUR PRN
     Route: 065
     Dates: start: 20180831, end: 20180809
  321. ALBUMIN [Concomitant]
     Active Substance: ALBUMIN HUMAN
     Dosage: 120 ML, UNK
     Route: 065
     Dates: start: 20180730, end: 20180802
  322. ALBUMIN [Concomitant]
     Active Substance: ALBUMIN HUMAN
     Dosage: 50 ML, QD
     Route: 065
     Dates: start: 20180818, end: 20180818
  323. NORCURON [Concomitant]
     Active Substance: VECURONIUM BROMIDE
     Dosage: 50 MG, EVERY 1 HOUR PRN
     Route: 065
     Dates: start: 20180727
  324. OFIRMEV [Concomitant]
     Active Substance: ACETAMINOPHEN
     Indication: PRODUCT USED FOR UNKNOWN INDICATION
     Dosage: 1000 MG, QD
     Route: 042
     Dates: start: 20180404
  325. OFIRMEV [Concomitant]
     Active Substance: ACETAMINOPHEN
     Dosage: 1000 MG, QD
     Route: 042
     Dates: start: 20180503
  326. OFIRMEV [Concomitant]
     Active Substance: ACETAMINOPHEN
     Dosage: 1000 MG, QD
     Route: 042
     Dates: start: 20180506
  327. OFIRMEV [Concomitant]
     Active Substance: ACETAMINOPHEN
     Dosage: 600 MG, QD
     Route: 042
     Dates: start: 20180530
  328. OFIRMEV [Concomitant]
     Active Substance: ACETAMINOPHEN
     Dosage: 500 MG,EVERY 6 HOURS PRN
     Route: 042
     Dates: start: 20180725, end: 20180728
  329. OFIRMEV [Concomitant]
     Active Substance: ACETAMINOPHEN
     Dosage: 500 MG,EVERY 6 HOURS PRN
     Route: 042
     Dates: start: 20180805, end: 20180807
  330. OFIRMEV [Concomitant]
     Active Substance: ACETAMINOPHEN
     Dosage: 650MG,EVERY 6 HOURS PRN
     Route: 042
     Dates: start: 20180809, end: 20180828
  331. MAGNESIUM [Concomitant]
     Active Substance: MAGNESIUM
     Dosage: UNK, QD
     Route: 065
     Dates: start: 20180805
  332. CALCIUM [Concomitant]
     Active Substance: CALCIUM
     Dosage: 1144 MG/ML, QD
     Route: 065
     Dates: start: 20180731
  333. LIDOCAINE. [Concomitant]
     Active Substance: LIDOCAINE
     Dosage: 0.25 ML, QD
     Route: 065
     Dates: start: 20180404
  334. ADRENALIN [Concomitant]
     Active Substance: EPINEPHRINE
     Dosage: UNK, PRN
     Route: 065
     Dates: start: 20180808
  335. MERREM [Concomitant]
     Active Substance: MEROPENEM
     Dosage: UNK
     Route: 065
     Dates: start: 20180504
  336. MYDRIACYL [Concomitant]
     Active Substance: TROPICAMIDE
     Indication: PRODUCT USED FOR UNKNOWN INDICATION
     Route: 065
  337. SOLU-MEDROL [Concomitant]
     Active Substance: METHYLPREDNISOLONE SODIUM SUCCINATE
     Dosage: 63 MG, UNK
     Route: 065
     Dates: start: 20180410
  338. SOLU-CORTEF [Concomitant]
     Active Substance: HYDROCORTISONE SODIUM SUCCINATE
     Dosage: 50 MG, PRN
     Route: 065
     Dates: start: 20180410
  339. SOLU-CORTEF [Concomitant]
     Active Substance: HYDROCORTISONE SODIUM SUCCINATE
     Dosage: 65 MG, PRN
     Route: 065
     Dates: start: 20180530
  340. SOLU-CORTEF [Concomitant]
     Active Substance: HYDROCORTISONE SODIUM SUCCINATE
     Dosage: 25 MG, ONCE PRN
     Route: 065
     Dates: start: 20180815
  341. CEREBREX [Concomitant]
     Active Substance: CALCIUM GLYCEROPHOSPHATE\CALCIUM PHOSPHATE\GLUTAMIC ACID\VITAMIN B
     Indication: PRODUCT USED FOR UNKNOWN INDICATION
     Route: 065
  342. ZOSYN [Concomitant]
     Active Substance: PIPERACILLIN SODIUM\TAZOBACTAM SODIUM
     Indication: PRODUCT USED FOR UNKNOWN INDICATION
     Route: 065
  343. XYLOCAINE [Concomitant]
     Active Substance: LIDOCAINE HYDROCHLORIDE
     Dosage: 10 MG/ML, QD
     Route: 065
     Dates: start: 20180826
  344. ZEMURON [Concomitant]
     Active Substance: ROCURONIUM BROMIDE
     Indication: PRODUCT USED FOR UNKNOWN INDICATION
  345. ACTEMRA [Concomitant]
     Active Substance: TOCILIZUMAB
     Indication: PRODUCT USED FOR UNKNOWN INDICATION
     Route: 065
  346. ATIVAN [Concomitant]
     Active Substance: LORAZEPAM
     Dosage: 0.5 MG, Q6H
     Route: 065
     Dates: start: 20180508
  347. ZOFRAN [Concomitant]
     Active Substance: ONDANSETRON HYDROCHLORIDE
     Dosage: UNK, Q8H PRN
     Route: 065
     Dates: start: 20180403
  348. TYLENOL [Concomitant]
     Active Substance: ACETAMINOPHEN
     Indication: PRODUCT USED FOR UNKNOWN INDICATION
     Dosage: UNK UNK, PRN
     Route: 065
     Dates: start: 20180330
  349. TYLENOL [Concomitant]
     Active Substance: ACETAMINOPHEN
     Dosage: 1000 MG, PRN
     Route: 065
     Dates: start: 20180528
  350. TYLENOL [Concomitant]
     Active Substance: ACETAMINOPHEN
     Dosage: 1000 MG, PRN
     Route: 065
     Dates: start: 20180530
  351. TYLENOL [Concomitant]
     Active Substance: ACETAMINOPHEN
     Dosage: 1000 MG, PRN
     Route: 065
     Dates: start: 20180531
  352. DILAUDID [Concomitant]
     Active Substance: HYDROMORPHONE HYDROCHLORIDE
     Dosage: 2.4 MG, EVERY 2 HOURS PRN
     Route: 065
     Dates: start: 20180810
  353. CALCIUM [Concomitant]
     Active Substance: CALCIUM
     Indication: PRODUCT USED FOR UNKNOWN INDICATION
     Dosage: 20 MG/ML, UNK
     Route: 042
     Dates: start: 20180403
  354. MARCAINE [Concomitant]
     Active Substance: BUPIVACAINE HYDROCHLORIDE
     Indication: PRODUCT USED FOR UNKNOWN INDICATION
     Dosage: PRN
     Route: 065
     Dates: start: 20180330
  355. MARCAINE [Concomitant]
     Active Substance: BUPIVACAINE HYDROCHLORIDE
     Dosage: UNK
     Route: 065
     Dates: start: 20180430
  356. ROCEPHIN [Concomitant]
     Active Substance: CEFTRIAXONE SODIUM
     Indication: PRODUCT USED FOR UNKNOWN INDICATION
     Dosage: UNK ONCE
     Route: 065
     Dates: start: 20180329
  357. ROXICODONE [Concomitant]
     Active Substance: OXYCODONE HYDROCHLORIDE
     Dosage: 5 MG, PRN
     Route: 065
     Dates: start: 20180430
  358. BENADRYL [Concomitant]
     Active Substance: DIPHENHYDRAMINE HYDROCHLORIDE
     Dosage: 25 MG, PRN
     Route: 065
     Dates: start: 20180527
  359. PROVENTIL [Concomitant]
     Active Substance: ALBUTEROL
     Dosage: 2.5 MG/ML, Q4H
     Route: 055
     Dates: start: 20180512
  360. PROVENTIL [Concomitant]
     Active Substance: ALBUTEROL
     Dosage: 2.5 MG/ML, Q4H
     Route: 055
     Dates: start: 20180521
  361. APRESOLINE HYDROCHLORIDE [Concomitant]
     Active Substance: HYDRALAZINE HYDROCHLORIDE
     Indication: PRODUCT USED FOR UNKNOWN INDICATION
     Dosage: 5 MG, Q4H
     Route: 065
     Dates: start: 20180413
  362. APRESOLINE HYDROCHLORIDE [Concomitant]
     Active Substance: HYDRALAZINE HYDROCHLORIDE
     Dosage: 10 MG, Q4H
     Route: 065
     Dates: start: 20180504
  363. APRESOLINE HYDROCHLORIDE [Concomitant]
     Active Substance: HYDRALAZINE HYDROCHLORIDE
     Dosage: 6.6 MG, Q4H
     Route: 065
     Dates: start: 20180520
  364. LASIX [Concomitant]
     Active Substance: FUROSEMIDE
     Dosage: 10 MG, Q6H
     Route: 065
     Dates: start: 20180505
  365. LASIX [Concomitant]
     Active Substance: FUROSEMIDE
     Dosage: 10 MG, QD
     Route: 065
     Dates: start: 20180509
  366. VFEND [Concomitant]
     Active Substance: VORICONAZOLE
     Indication: PRODUCT USED FOR UNKNOWN INDICATION
     Dosage: 384 UNK, Q12H
     Route: 065
     Dates: start: 20180420
  367. KYMRIAH [Suspect]
     Active Substance: TISAGENLECLEUCEL
     Indication: ACUTE LYMPHOCYTIC LEUKAEMIA RECURRENT
     Dosage: 1 DF, ONCE/SINGLE
     Route: 042
     Dates: start: 20180626
  368. SODIUM CHLORIDE. [Concomitant]
     Active Substance: SODIUM CHLORIDE
     Dosage: 0.45 %, UNK
     Route: 065
     Dates: start: 20180805, end: 20180901
  369. SODIUM CHLORIDE. [Concomitant]
     Active Substance: SODIUM CHLORIDE
     Dosage: 0.9 %, PRN
     Route: 065
     Dates: start: 20180827
  370. SUBLIMAZE [Concomitant]
     Active Substance: FENTANYL CITRATE
     Dosage: 25 MCG, QD
     Route: 065
     Dates: start: 20180809, end: 20180809
  371. ALBUMIN [Concomitant]
     Active Substance: ALBUMIN HUMAN
     Dosage: 250 ML, UNK
     Route: 065
     Dates: start: 20180723, end: 20180723
  372. ALBUMIN [Concomitant]
     Active Substance: ALBUMIN HUMAN
     Dosage: UNK
     Route: 065
     Dates: start: 20180727, end: 20180727
  373. ALBUMIN [Concomitant]
     Active Substance: ALBUMIN HUMAN
     Dosage: 50 ML, Q12H
     Route: 065
     Dates: start: 20180816, end: 20180817
  374. OFIRMEV [Concomitant]
     Active Substance: ACETAMINOPHEN
     Dosage: 500 MG, QD
     Route: 042
     Dates: start: 20180408
  375. OFIRMEV [Concomitant]
     Active Substance: ACETAMINOPHEN
     Dosage: 1000 MG, QD
     Route: 042
     Dates: start: 20180509
  376. OFIRMEV [Concomitant]
     Active Substance: ACETAMINOPHEN
     Dosage: 1000 MG, QD
     Route: 042
     Dates: start: 20180510
  377. OFIRMEV [Concomitant]
     Active Substance: ACETAMINOPHEN
     Dosage: UNK
     Route: 042
     Dates: start: 20180627
  378. OFIRMEV [Concomitant]
     Active Substance: ACETAMINOPHEN
     Dosage: 715 MG,ONCE
     Route: 042
     Dates: start: 20180809, end: 20180809
  379. OFIRMEV [Concomitant]
     Active Substance: ACETAMINOPHEN
     Dosage: 650 MG,ONCE
     Route: 042
     Dates: start: 20180827, end: 20180827
  380. OFIRMEV [Concomitant]
     Active Substance: ACETAMINOPHEN
     Dosage: 650 MG, EVERY 6 HOURS PRN
     Route: 042
     Dates: start: 20180828, end: 20180829
  381. MAGNESIUM [Concomitant]
     Active Substance: MAGNESIUM
     Dosage: UNK, QD
     Route: 065
     Dates: start: 20180730
  382. LIDOCAINE. [Concomitant]
     Active Substance: LIDOCAINE
     Dosage: 10 ML, QD
     Route: 065
     Dates: start: 20180829
  383. CRESEMBA [Concomitant]
     Active Substance: ISAVUCONAZONIUM SULFATE
     Indication: PRODUCT USED FOR UNKNOWN INDICATION
     Route: 065
  384. ADRENALIN [Concomitant]
     Active Substance: EPINEPHRINE
     Dosage: UNK, PRN
     Route: 065
     Dates: start: 20180806
  385. ADRENALIN [Concomitant]
     Active Substance: EPINEPHRINE
     Dosage: UNK, PRN
     Route: 065
     Dates: start: 20180829
  386. ELITEK [Concomitant]
     Active Substance: RASBURICASE
     Indication: PRODUCT USED FOR UNKNOWN INDICATION
     Route: 065
  387. SOLU-CORTEF [Concomitant]
     Active Substance: HYDROCORTISONE SODIUM SUCCINATE
     Indication: PRODUCT USED FOR UNKNOWN INDICATION
     Dosage: 50 MG, PRN
     Route: 065
     Dates: start: 20180403
  388. SOLU-CORTEF [Concomitant]
     Active Substance: HYDROCORTISONE SODIUM SUCCINATE
     Dosage: 25 MG, UNK
     Route: 065
     Dates: start: 20180801
  389. SOLU-CORTEF [Concomitant]
     Active Substance: HYDROCORTISONE SODIUM SUCCINATE
     Dosage: 100 MG, ONCE
     Route: 065
     Dates: start: 20180802
  390. SOLU-CORTEF [Concomitant]
     Active Substance: HYDROCORTISONE SODIUM SUCCINATE
     Dosage: 8 MG, EVERY 8 HOURS
     Route: 065
     Dates: start: 20180822
  391. SOLU-CORTEF [Concomitant]
     Active Substance: HYDROCORTISONE SODIUM SUCCINATE
     Dosage: 7.5 MG, EVERY 8 HOURS
     Route: 065
     Dates: start: 20180826
  392. NOVOSEVEN [Concomitant]
     Active Substance: COAGULATION FACTOR VIIA RECOMBINANT HUMAN
     Dosage: 3 MG, ONCE
     Route: 065
     Dates: start: 20180830
  393. PERIDEX [Concomitant]
     Active Substance: CHLORHEXIDINE GLUCONATE
     Indication: PRODUCT USED FOR UNKNOWN INDICATION
     Route: 065
  394. XYLOCAINE [Concomitant]
     Active Substance: LIDOCAINE HYDROCHLORIDE
     Dosage: 10 MG/ML, QD
     Route: 065
     Dates: start: 20180828
  395. CANCIDAS [Concomitant]
     Active Substance: CASPOFUNGIN ACETATE
     Dosage: 70 MG, QD
     Route: 065
     Dates: start: 20180505
  396. COLACE [Concomitant]
     Active Substance: DOCUSATE SODIUM
     Dosage: 250 MG, BID PRN
     Route: 065
     Dates: start: 20180427
  397. KYTRIL [Concomitant]
     Active Substance: GRANISETRON HYDROCHLORIDE
     Indication: PRODUCT USED FOR UNKNOWN INDICATION
     Route: 065

REACTIONS (36)
  - Cytokine release syndrome [Recovered/Resolved with Sequelae]
  - Haemophagocytic lymphohistiocytosis [Unknown]
  - Blood creatinine increased [Recovered/Resolved]
  - Tachycardia [Unknown]
  - Status epilepticus [Recovered/Resolved]
  - Melaena [Unknown]
  - Hypocalcaemia [Unknown]
  - Staphylococcal infection [Recovered/Resolved with Sequelae]
  - Tumour lysis syndrome [Recovered/Resolved]
  - Respiratory failure [Not Recovered/Not Resolved]
  - Hypoxia [Unknown]
  - Gastrointestinal haemorrhage [Unknown]
  - Liver function test increased [Unknown]
  - Bone marrow failure [Not Recovered/Not Resolved]
  - Acute kidney injury [Recovering/Resolving]
  - CAR T-cell-related encephalopathy syndrome [Unknown]
  - B-cell aplasia [Not Recovered/Not Resolved]
  - Septic shock [Unknown]
  - Bradycardia [Unknown]
  - Haematuria [Unknown]
  - Blood urea increased [Unknown]
  - Aspergillus infection [Recovered/Resolved with Sequelae]
  - Candida infection [Recovered/Resolved with Sequelae]
  - Pyrexia [Unknown]
  - Hypotension [Recovering/Resolving]
  - Neurotoxicity [Recovering/Resolving]
  - Acute lymphocytic leukaemia recurrent [Unknown]
  - Somnolence [Unknown]
  - Hyperkalaemia [Unknown]
  - Cytokine storm [Recovering/Resolving]
  - Ventricular tachycardia [Recovering/Resolving]
  - Hyperphosphataemia [Unknown]
  - Blood lactic acid increased [Recovered/Resolved]
  - Pulmonary haemorrhage [Fatal]
  - Neutropenia [Recovering/Resolving]
  - Pericardial effusion [Unknown]

NARRATIVE: CASE EVENT DATE: 20180701
